FAERS Safety Report 7606479-6 (Version None)
Quarter: 2011Q3

REPORT INFORMATION
  Report Type: 
  Country: None (occurrence: None)
  Receive Date: 20110713
  Receipt Date: 20110707
  Transmission Date: 20111222
  Serious: Yes (Life-Threatening, Hospitalization, Other)
  Sender: FDA-Public Use
  Company Number: US-BAYER-200943210NA

PATIENT
  Age: 71 Year
  Sex: Female
  Weight: 56.29 kg

DRUGS (11)
  1. SORAFENIB (RAF KINASE INHIBITOR) [Suspect]
     Route: 048
     Dates: start: 20091125, end: 20091215
  2. LANSOPRAZOLE [Concomitant]
     Dosage: ORALLY DISINTEGRATING TAKES AT 6 AM
     Route: 048
  3. SORAFENIB (RAF KINASE INHIBITOR) [Suspect]
     Indication: HEPATIC NEOPLASM MALIGNANT
     Route: 048
     Dates: start: 20090921, end: 20091124
  4. MAGNESIUM [Concomitant]
  5. ASPIRIN [Concomitant]
     Route: 048
  6. MAGNESIUM [Concomitant]
  7. ASCORBIC ACID [Concomitant]
     Route: 048
  8. CIPROFLOXACIN HCL [Concomitant]
     Indication: URINARY TRACT INFECTION
     Route: 048
  9. LEVAQUIN [Concomitant]
     Indication: URINARY TRACT INFECTION
  10. CANDESARTAN CILEXETIL [Concomitant]
     Dosage: ONE TABLET DAILY  (ON HOLD)
     Route: 048
  11. HYDROCHLOROTHIAZIDE [Concomitant]
     Route: 048

REACTIONS (10)
  - DIARRHOEA [None]
  - OEDEMA PERIPHERAL [None]
  - PAIN [None]
  - ARTERIOSCLEROSIS [None]
  - ASCITES [None]
  - INSOMNIA [None]
  - HYPOKALAEMIA [None]
  - PLEURAL EFFUSION [None]
  - ATELECTASIS [None]
  - FATIGUE [None]
